FAERS Safety Report 4372039-6 (Version None)
Quarter: 2004Q2

REPORT INFORMATION
  Report Type: 
  Country: None (occurrence: None)
  Receive Date: 20040602
  Receipt Date: 20030601
  Transmission Date: 20050107
  Serious: Yes (Hospitalization)
  Sender: FDA-Public Use
  Company Number: LTI2004A00076

PATIENT
  Age: 69 Year
  Sex: Male

DRUGS (9)
  1. ACTOS [Suspect]
     Indication: DIABETES MELLITUS NON-INSULIN-DEPENDENT
     Dosage: 30 MG (30 MG, 1 N 1, D) ORAL
     Route: 048
     Dates: start: 20030613, end: 20040201
  2. AMARYL [Concomitant]
  3. STAGID(METFORMIN EMBONATE) [Concomitant]
  4. GLUCOR 100(ACARBOSE) [Concomitant]
  5. ALLOPURINOL [Concomitant]
  6. LIPANTHYL 200(FENOFIBRATE) [Concomitant]
  7. NIFEDIPINE [Concomitant]
  8. COTAREG(CO-DIOVAN) [Concomitant]
  9. SOPROL (BISOPROLOL FUMARATE) [Concomitant]

REACTIONS (4)
  - ABDOMINAL PAIN [None]
  - LIBIDO DECREASED [None]
  - PANCREATITIS [None]
  - WEIGHT INCREASED [None]
